FAERS Safety Report 9470532 (Version 2)
Quarter: 2013Q3

REPORT INFORMATION
  Report Type: Spontaneous
  Country: US (occurrence: US)
  Receive Date: 20130822
  Receipt Date: 20130823
  Transmission Date: 20140515
  Serious: No
  Sender: FDA-Public Use
  Company Number: US-009507513-1308USA006717

PATIENT
  Sex: Female
  Weight: 105.67 kg

DRUGS (1)
  1. IMPLANON [Suspect]
     Indication: CONTRACEPTION
     Dosage: UNK
     Route: 059
     Dates: start: 20130701

REACTIONS (4)
  - Menstruation delayed [Unknown]
  - Abdominal pain [Unknown]
  - Vulvovaginal pain [Unknown]
  - Headache [Unknown]
